FAERS Safety Report 4498295-1 (Version None)
Quarter: 2004Q4

REPORT INFORMATION
  Report Type: 
  Country: None (occurrence: None)
  Receive Date: 20041109
  Receipt Date: 20041109
  Transmission Date: 20050328
  Serious: Yes (Hospitalization)
  Sender: FDA-Public Use
  Company Number: None

PATIENT
  Sex: Male
  Weight: 80 kg

DRUGS (11)
  1. CARMUSTINE [Suspect]
     Indication: GLIOBLASTOMA MULTIFORME
     Dosage: 186MG IV Q 6WEEKS
     Route: 042
     Dates: start: 20041012
  2. TOPOTECAN 1.5MG/M2/72HR INFUSION [Suspect]
     Indication: GLIOBLASTOMA MULTIFORME
     Dosage: 2.79MG IV OVER 72HR INFUSION Q WEEK
     Route: 042
     Dates: start: 20041012
  3. TOPOTECAN 1.5MG/M2/72HR INFUSION [Suspect]
     Indication: GLIOBLASTOMA MULTIFORME
     Dosage: 2.79MG IV OVER 72HR INFUSION Q WEEK
     Route: 042
     Dates: start: 20041019
  4. TOPOTECAN 1.5MG/M2/72HR INFUSION [Suspect]
     Indication: GLIOBLASTOMA MULTIFORME
     Dosage: 2.79MG IV OVER 72HR INFUSION Q WEEK
     Route: 042
     Dates: start: 20041026
  5. DECADRON [Concomitant]
  6. DILANTIN [Concomitant]
  7. ZANTAC [Concomitant]
  8. VALIUM [Concomitant]
  9. SONATA [Concomitant]
  10. LORTAB [Concomitant]
  11. KEPPRA [Concomitant]

REACTIONS (4)
  - CONSTIPATION [None]
  - HEADACHE [None]
  - NAUSEA [None]
  - VOMITING [None]
